FAERS Safety Report 7869158-6 (Version None)
Quarter: 2011Q4

REPORT INFORMATION
  Report Type: 
  Country: None (occurrence: None)
  Receive Date: 20111028
  Receipt Date: 20101228
  Transmission Date: 20120403
  Serious: No
  Sender: FDA-Public Use
  Company Number: US-AMGEN-USASP2010011942

PATIENT
  Age: 41 Year
  Sex: Male

DRUGS (3)
  1. ASPIRIN [Concomitant]
     Dosage: 81 MG, UNK
  2. LOTREL [Concomitant]
     Dosage: 5 UNK, UNK
  3. ENBREL [Suspect]
     Indication: PRODUCT USED FOR UNKNOWN INDICATION
     Dosage: 50 MG, QWK
     Route: 058

REACTIONS (1)
  - UPPER RESPIRATORY TRACT INFECTION [None]
